FAERS Safety Report 10013488 (Version 1)
Quarter: 2014Q1

REPORT INFORMATION
  Report Type: Spontaneous
  Country: JP (occurrence: JP)
  Receive Date: 20140314
  Receipt Date: 20140314
  Transmission Date: 20141002
  Serious: Yes (Other)
  Sender: FDA-Public Use
  Company Number: JP-009507513-1403JPN006508

PATIENT
  Sex: 0

DRUGS (1)
  1. GASTER D [Suspect]
     Indication: PRODUCT USED FOR UNKNOWN INDICATION
     Dosage: ORODISPERSIBLE CR TABLET, THERAPY DURATION: UNKNOWN, DAILY DOSAGE: UNKNOWN
     Route: 048

REACTIONS (1)
  - Analgesic asthma syndrome [Unknown]
